FAERS Safety Report 21052312 (Version 1)
Quarter: 2022Q3

REPORT INFORMATION
  Report Type: Spontaneous
  Country: US (occurrence: US)
  Receive Date: 20220707
  Receipt Date: 20220707
  Transmission Date: 20221026
  Serious: No
  Sender: FDA-Public Use
  Company Number: US-PERRIGO-21US007648

PATIENT
  Sex: Female
  Weight: 62.585 kg

DRUGS (11)
  1. PREVACID 24 HR [Suspect]
     Active Substance: LANSOPRAZOLE
     Indication: Dyspepsia
     Dosage: 15 MG, QD
     Route: 048
     Dates: start: 2021, end: 20210601
  2. UNSPECIFIED INGREDIENT [Suspect]
     Active Substance: UNSPECIFIED INGREDIENT
     Indication: Cortisol abnormal
     Dosage: 1 TABLET, QD
     Route: 048
     Dates: start: 202104, end: 202104
  3. UNSPECIFIED INGREDIENT [Suspect]
     Active Substance: UNSPECIFIED INGREDIENT
     Dosage: 2 TABLETS, QD
     Route: 048
     Dates: start: 202104, end: 202104
  4. ATORVASTATIN [Concomitant]
     Active Substance: ATORVASTATIN
     Indication: Blood cholesterol abnormal
     Dosage: UNK
     Route: 065
     Dates: start: 2019
  5. LISINOPRIL [Concomitant]
     Active Substance: LISINOPRIL
     Indication: Hypertension
     Dosage: UNK
     Route: 065
     Dates: start: 2011
  6. B12                                /00056201/ [Concomitant]
     Indication: Supplementation therapy
     Dosage: UNK
     Route: 065
  7. VITAMIN D NOS [Concomitant]
     Active Substance: VITAMIN D NOS
     Indication: Supplementation therapy
     Dosage: UNK
     Route: 065
  8. BIOTIN [Concomitant]
     Active Substance: BIOTIN
     Indication: Supplementation therapy
     Dosage: UNK
     Route: 065
  9. CALCIUM MAGNESIUM + ZINC           /01320801/ [Concomitant]
     Indication: Supplementation therapy
     Dosage: UNK
     Route: 065
  10. COQ10                              /00517201/ [Concomitant]
     Indication: Supplementation therapy
     Dosage: UNK
     Route: 065
  11. ASPIRIN [Concomitant]
     Active Substance: ASPIRIN
     Indication: Arteriosclerosis
     Dosage: UNK
     Route: 065

REACTIONS (2)
  - Diarrhoea [Recovering/Resolving]
  - Incorrect product administration duration [Recovered/Resolved]

NARRATIVE: CASE EVENT DATE: 20210101
